FAERS Safety Report 6698649-9 (Version None)
Quarter: 2010Q2

REPORT INFORMATION
  Report Type: 
  Country: None (occurrence: None)
  Receive Date: 20100427
  Receipt Date: 20100414
  Transmission Date: 20101027
  Serious: Yes (Other)
  Sender: FDA-Public Use
  Company Number: PHHY2010IE26369

PATIENT
  Sex: Male

DRUGS (6)
  1. CLOZARIL [Suspect]
     Indication: SCHIZOPHRENIA
     Dosage: 200 MG, QD
     Dates: start: 20100215
  2. TOPAMAX [Concomitant]
     Dosage: UNK
  3. BECOTIDE [Concomitant]
  4. SALBUTAMOL [Concomitant]
  5. KWELLS [Concomitant]
  6. PROTIUM [Concomitant]
     Dosage: UNK

REACTIONS (5)
  - ANTIPSYCHOTIC DRUG LEVEL ABOVE THERAPEUTIC [None]
  - DYSARTHRIA [None]
  - SALIVARY HYPERSECRETION [None]
  - TACHYCARDIA [None]
  - VISION BLURRED [None]
